FAERS Safety Report 21092961 (Version 1)
Quarter: 2022Q3

REPORT INFORMATION
  Report Type: Spontaneous
  Country: CN (occurrence: CN)
  Receive Date: 20220718
  Receipt Date: 20220718
  Transmission Date: 20221026
  Serious: Yes (Other)
  Sender: FDA-Public Use
  Company Number: None

PATIENT
  Age: 29 Year
  Sex: Female
  Weight: 65 kg

DRUGS (9)
  1. CYCLOPHOSPHAMIDE [Suspect]
     Active Substance: CYCLOPHOSPHAMIDE
     Indication: Breast cancer female
     Dosage: UNK, QD, 1ST CHEMOTHERAPY, CYCLOPHOPHAMIDE DILUTED WITH SODIUM CHLORIDE
     Route: 042
  2. CYCLOPHOSPHAMIDE [Suspect]
     Active Substance: CYCLOPHOSPHAMIDE
     Dosage: 1000 MG, QD, (DOSAGE FORM: POWDER INJECTION), 2ND CHEMOTHERAPY, CYCLOPHOSPHAMIDE 1000 MG DILUTED WIT
     Route: 042
     Dates: start: 20220503, end: 20220503
  3. SODIUM CHLORIDE [Suspect]
     Active Substance: SODIUM CHLORIDE
     Indication: Medication dilution
     Dosage: UNK, QD, 1ST CHEMOTHERAPY, CYCLOPHOSPHAMIDE DILUTED WITH SODIUM CHLORIDE
     Route: 042
  4. SODIUM CHLORIDE [Suspect]
     Active Substance: SODIUM CHLORIDE
     Dosage: 50 ML, QD, 2ND CHEMOTHERAPY, CYCLOPHOSPHAMIDE 1000 MG DILUTED WITH NS 50ML
     Route: 042
     Dates: start: 20220503, end: 20220503
  5. SODIUM CHLORIDE [Suspect]
     Active Substance: SODIUM CHLORIDE
     Dosage: UNK, QD, 1ST CHEMOTHERAPY, DOCETAXEL DILUTED WITH SODIUM CHLORIDE
     Route: 041
  6. SODIUM CHLORIDE [Suspect]
     Active Substance: SODIUM CHLORIDE
     Dosage: 250 ML, QD, 2ND CHEMOTHERAPY, DOCETAXEL 130 MG DILUTED WITH NS 250ML
     Route: 041
  7. TAXOTERE [Suspect]
     Active Substance: DOCETAXEL
     Indication: Breast cancer female
     Dosage: UNK, QD, 1ST CHEMOTHERAPY, DOCETAXEL DILUTED WITH SODIUM CHLORIDE
     Route: 041
  8. TAXOTERE [Suspect]
     Active Substance: DOCETAXEL
     Dosage: 130 MG, QD, 2ND CHEMOTHERAPY, DOCETAXEL 130 MG DILUTED WITH NS 250ML
     Route: 041
     Dates: start: 20220503, end: 20220503
  9. AI DUO [Concomitant]
     Indication: Product used for unknown indication
     Dosage: 6 MG, THIRD DAY
     Route: 058
     Dates: start: 20220505

REACTIONS (2)
  - White blood cell count decreased [Recovered/Resolved]
  - Agranulocytosis [Recovered/Resolved]

NARRATIVE: CASE EVENT DATE: 20220509
